FAERS Safety Report 8794175 (Version 1)
Quarter: 2012Q4

REPORT INFORMATION
  Report Type: Report from Study
  Country: DE (occurrence: DE)
  Receive Date: 20120917
  Receipt Date: 20120917
  Transmission Date: 20130627
  Serious: Yes (Hospitalization)
  Sender: FDA-Public Use
  Company Number: DE-BAXTER-2012BAX016688

PATIENT
  Age: 59 Year
  Sex: Female
  Weight: 60 kg

DRUGS (10)
  1. ENDOXAN 1G [Suspect]
     Indication: CHRONIC LYMPHOCYTIC LEUKAEMIA
     Route: 042
     Dates: start: 20091116
  2. ENDOXAN 1G [Suspect]
     Route: 042
     Dates: start: 20100226
  3. ENDOXAN 1G [Suspect]
     Route: 042
     Dates: start: 20100427
  4. RITUXIMAB [Suspect]
     Indication: CHRONIC LYMPHOCYTIC LEUKAEMIA
     Route: 042
     Dates: start: 20091116
  5. RITUXIMAB [Suspect]
     Route: 042
     Dates: start: 20100224
  6. RITUXIMAB [Suspect]
     Route: 042
     Dates: start: 20100427
  7. FLUDARABINE [Suspect]
     Indication: CHRONIC LYMPHOCYTIC LEUKAEMIA
     Route: 042
     Dates: start: 20091116
  8. FLUDARABINE [Suspect]
     Route: 042
     Dates: start: 20100226
  9. FLUDARABINE [Suspect]
     Route: 042
     Dates: start: 20100427
  10. COTRIM FORTE [Concomitant]
     Indication: DRUG USE FOR UNKNOWN INDICATION
     Route: 065
     Dates: start: 200911

REACTIONS (3)
  - Febrile neutropenia [Recovered/Resolved]
  - Febrile neutropenia [Recovered/Resolved]
  - Febrile infection [Recovered/Resolved]
